FAERS Safety Report 5744724-2 (Version None)
Quarter: 2008Q2

REPORT INFORMATION
  Report Type: 
  Country: None (occurrence: None)
  Receive Date: 20080516
  Receipt Date: 20080501
  Transmission Date: 20081010
  Serious: Yes (Other)
  Sender: FDA-Public Use
  Company Number: PAR_02201_2008

PATIENT
  Sex: Female

DRUGS (2)
  1. MEGACE ES [Suspect]
     Indication: DRUG USE FOR UNKNOWN INDICATION
     Dosage: (625 MG/5ML)
     Dates: start: 20080301
  2. MEGESTROL ACETATE [Suspect]
     Indication: DRUG USE FOR UNKNOWN INDICATION
     Dosage: (DF ORAL)
     Route: 048
     Dates: start: 20070401, end: 20080301

REACTIONS (1)
  - DEEP VEIN THROMBOSIS [None]
